FAERS Safety Report 9045590 (Version 1)
Quarter: 2013Q1

REPORT INFORMATION
  Report Type: Report from Study
  Country: US (occurrence: US)
  Receive Date: 20130131
  Receipt Date: 20130131
  Transmission Date: 20140127
  Serious: No
  Sender: FDA-Public Use
  Company Number: US-ABBOTT-12P-163-1010836-00

PATIENT
  Age: 52 None
  Sex: Female
  Weight: 77.18 kg

DRUGS (4)
  1. HUMIRA [Suspect]
     Indication: RHEUMATOID ARTHRITIS
     Dates: start: 20121015, end: 20121110
  2. ATENOLOL [Concomitant]
     Indication: HYPERTENSION
  3. EVAMIST [Concomitant]
     Indication: HORMONE REPLACEMENT THERAPY
  4. SODIUM PANTAPRAZOLE [Concomitant]
     Indication: GASTRIC ULCER

REACTIONS (2)
  - Cough [Not Recovered/Not Resolved]
  - Nasopharyngitis [Recovering/Resolving]
